FAERS Safety Report 21978912 (Version 1)
Quarter: 2023Q1

REPORT INFORMATION
  Report Type: Spontaneous
  Country: US (occurrence: US)
  Receive Date: 20230210
  Receipt Date: 20230210
  Transmission Date: 20230418
  Serious: No
  Sender: FDA-Public Use
  Company Number: US-PERRIGO-22US013379

PATIENT
  Age: 96 Year
  Sex: Female

DRUGS (1)
  1. LOPERAMIDE HYDROCHLORIDE [Suspect]
     Active Substance: LOPERAMIDE HYDROCHLORIDE
     Indication: Frequent bowel movements
     Dosage: 2 MG, PRN
     Route: 048
     Dates: start: 2022, end: 20221001

REACTIONS (2)
  - Drug ineffective for unapproved indication [Unknown]
  - Intentional product use issue [Recovered/Resolved]

NARRATIVE: CASE EVENT DATE: 20220101
